FAERS Safety Report 17816901 (Version 1)
Quarter: 2020Q2

REPORT INFORMATION
  Report Type: Spontaneous
  Country: US (occurrence: US)
  Receive Date: 20200522
  Receipt Date: 20200522
  Transmission Date: 20200714
  Serious: No
  Sender: FDA-Public Use
  Company Number: US-FDC LIMITED-2020RIS00169

PATIENT
  Age: 80 Year
  Sex: Female
  Weight: 50.34 kg

DRUGS (12)
  1. TIMOLOL MALEATE. [Suspect]
     Active Substance: TIMOLOL MALEATE
     Indication: GLAUCOMA
     Dosage: 1 DROP, 2X/DAY IN THE RIGHT EYE
     Route: 061
     Dates: start: 2012
  2. FISH OIL [Concomitant]
     Active Substance: FISH OIL
  3. TRAVATAN Z [Concomitant]
     Active Substance: TRAVOPROST
     Dosage: UNK
     Dates: start: 2015
  4. BILBERRY [Concomitant]
     Active Substance: BILBERRY
  5. RESTASIS [Concomitant]
     Active Substance: CYCLOSPORINE
  6. BENADRYL [Concomitant]
     Active Substance: DIPHENHYDRAMINE HYDROCHLORIDE
     Dosage: UNK, AS NEEDED
  7. GENERIC TYLENOL [Concomitant]
  8. LUTEIN [Concomitant]
     Active Substance: LUTEIN
  9. BACLOFEN. [Concomitant]
     Active Substance: BACLOFEN
  10. LATANOPROST. [Concomitant]
     Active Substance: LATANOPROST
     Dosage: UNK
     Dates: start: 202003
  11. MONTELUKAST [Concomitant]
     Active Substance: MONTELUKAST SODIUM
     Dosage: UNK, AS NEEDED
  12. CALCIUM [Concomitant]
     Active Substance: CALCIUM

REACTIONS (1)
  - Dry eye [Not Recovered/Not Resolved]
